FAERS Safety Report 25755652 (Version 1)
Quarter: 2025Q3

REPORT INFORMATION
  Report Type: Spontaneous
  Country: CN (occurrence: CN)
  Receive Date: 20250903
  Receipt Date: 20250903
  Transmission Date: 20251021
  Serious: Yes (Other)
  Sender: Haleon PLC
  Company Number: CN-HALEON-2260860

PATIENT
  Age: 16 Year
  Sex: Female

DRUGS (3)
  1. DEXTROMETHORPHAN HYDROBROMIDE\GUAIFENESIN [Suspect]
     Active Substance: DEXTROMETHORPHAN HYDROBROMIDE\GUAIFENESIN
     Indication: Drug dependence
  2. DEXTROMETHORPHAN HYDROBROMIDE\GUAIFENESIN [Suspect]
     Active Substance: DEXTROMETHORPHAN HYDROBROMIDE\GUAIFENESIN
  3. DEXTROMETHORPHAN HYDROBROMIDE\GUAIFENESIN [Suspect]
     Active Substance: DEXTROMETHORPHAN HYDROBROMIDE\GUAIFENESIN

REACTIONS (11)
  - Drug abuse [Unknown]
  - Withdrawal syndrome [Unknown]
  - Balance disorder [Unknown]
  - Pruritus [Unknown]
  - Illusion [Unknown]
  - Somnolence [Unknown]
  - Drug dependence [Unknown]
  - Agitation [Unknown]
  - Pyrexia [Unknown]
  - Hallucination [Unknown]
  - Dizziness [Unknown]
